FAERS Safety Report 6907953-8 (Version None)
Quarter: 2010Q3

REPORT INFORMATION
  Report Type: 
  Country: None (occurrence: None)
  Receive Date: 20100805
  Receipt Date: 20100727
  Transmission Date: 20110219
  Serious: Yes (Other)
  Sender: FDA-Public Use
  Company Number: PHHY2010KR49040

PATIENT
  Sex: Female

DRUGS (2)
  1. ACLASTA [Suspect]
     Indication: OSTEOPOROSIS
     Dosage: 5 MG
     Route: 042
     Dates: start: 20080509
  2. ACLASTA [Suspect]
     Dosage: 5 MG, UNK
     Route: 042
     Dates: start: 20090519

REACTIONS (2)
  - FALL [None]
  - WRIST FRACTURE [None]
